FAERS Safety Report 16363044 (Version 10)
Quarter: 2021Q2

REPORT INFORMATION
  Report Type: Spontaneous
  Country: US (occurrence: US)
  Receive Date: 20190528
  Receipt Date: 20210623
  Transmission Date: 20210716
  Serious: Yes (Life-Threatening, Other)
  Sender: FDA-Public Use
  Company Number: US-PFIZER INC-2019226497

PATIENT
  Sex: Female

DRUGS (1)
  1. LORBRENA [Suspect]
     Active Substance: LORLATINIB
     Indication: NON-SMALL CELL LUNG CANCER
     Dosage: UNK
     Dates: start: 2018, end: 202105

REACTIONS (12)
  - Pleural effusion [Unknown]
  - Pneumonia [Unknown]
  - Chest pain [Unknown]
  - Infection susceptibility increased [Unknown]
  - Weight increased [Unknown]
  - Blood cholesterol increased [Unknown]
  - Neoplasm progression [Not Recovered/Not Resolved]
  - Cognitive disorder [Unknown]
  - Lipids increased [Unknown]
  - Arthralgia [Unknown]
  - Memory impairment [Unknown]
  - Upper respiratory tract infection [Unknown]

NARRATIVE: CASE EVENT DATE: 2021
